FAERS Safety Report 17276889 (Version 7)
Quarter: 2023Q1

REPORT INFORMATION
  Report Type: Spontaneous
  Country: US (occurrence: US)
  Receive Date: 20200116
  Receipt Date: 20230228
  Transmission Date: 20230418
  Serious: No
  Sender: FDA-Public Use
  Company Number: US-PFIZER INC-2020020583

PATIENT
  Age: 65 Year
  Sex: Female
  Weight: 56.7 kg

DRUGS (2)
  1. ESTRING [Suspect]
     Active Substance: ESTRADIOL
     Dosage: UNK
  2. ESTRING [Suspect]
     Active Substance: ESTRADIOL
     Dosage: 2MG (FOR 3 MONTHS)

REACTIONS (12)
  - Headache [Unknown]
  - Bladder disorder [Unknown]
  - Bladder prolapse [Unknown]
  - General physical health deterioration [Unknown]
  - Furuncle [Not Recovered/Not Resolved]
  - Vulvovaginal dryness [Not Recovered/Not Resolved]
  - Vulvovaginal discomfort [Not Recovered/Not Resolved]
  - Dysuria [Not Recovered/Not Resolved]
  - Blood oestrogen abnormal [Unknown]
  - Rash [Unknown]
  - Therapeutic product effect incomplete [Unknown]
  - Device malfunction [Unknown]
